FAERS Safety Report 4286415-3 (Version None)
Quarter: 2004Q1

REPORT INFORMATION
  Report Type: 
  Country: None (occurrence: None)
  Receive Date: 20040206
  Receipt Date: 20040126
  Transmission Date: 20041129
  Serious: Yes (Life-Threatening, Hospitalization)
  Sender: FDA-Public Use
  Company Number: FR-BRISTOL-MYERS SQUIBB COMPANY-12486692

PATIENT
  Age: 29 Year
  Sex: Female

DRUGS (2)
  1. BRISTOPEN INJ [Suspect]
     Indication: LUNG DISORDER
     Route: 042
     Dates: start: 20031223, end: 20031230
  2. DI-HYDAN [Suspect]
     Indication: LUNG DISORDER
     Route: 042
     Dates: start: 20031222, end: 20031230

REACTIONS (4)
  - LEUKOCYTOSIS [None]
  - LUNG DISORDER [None]
  - NEUTROPENIA [None]
  - STAPHYLOCOCCAL INFECTION [None]
